FAERS Safety Report 7497535-4 (Version None)
Quarter: 2011Q2

REPORT INFORMATION
  Report Type: 
  Country: None (occurrence: None)
  Receive Date: 20110523
  Receipt Date: 20110510
  Transmission Date: 20111010
  Serious: Yes (Other)
  Sender: FDA-Public Use
  Company Number: PHHY2011US14025

PATIENT
  Sex: Male
  Weight: 67.12 kg

DRUGS (1)
  1. AFINITOR [Suspect]
     Indication: GASTROINTESTINAL STROMAL TUMOUR
     Dosage: 5 MG, QD
     Route: 048
     Dates: start: 20101208

REACTIONS (1)
  - HEPATIC LESION [None]
